FAERS Safety Report 9834381 (Version 1)
Quarter: 2014Q1

REPORT INFORMATION
  Report Type: Spontaneous
  Country: BR (occurrence: BR)
  Receive Date: 20140122
  Receipt Date: 20140122
  Transmission Date: 20141002
  Serious: Yes (Disabling)
  Sender: FDA-Public Use
  Company Number: BR-ASTRAZENECA-2014SE03290

PATIENT
  Age: 46 Year
  Sex: Female

DRUGS (1)
  1. SELOZOK [Suspect]
     Indication: ARRHYTHMIA
     Dosage: DAILY
     Route: 048
     Dates: start: 2013

REACTIONS (5)
  - Impaired work ability [Unknown]
  - Dyspnoea [Not Recovered/Not Resolved]
  - Insomnia [Not Recovered/Not Resolved]
  - Choking [Not Recovered/Not Resolved]
  - Dry throat [Not Recovered/Not Resolved]
